FAERS Safety Report 5559045-0 (Version None)
Quarter: 2007Q4

REPORT INFORMATION
  Report Type: 
  Country: None (occurrence: None)
  Receive Date: 20071214
  Receipt Date: 20070914
  Transmission Date: 20080405
  Serious: No
  Sender: FDA-Public Use
  Company Number: US-ABBOTT-07P-163-0417343-00

PATIENT
  Sex: Female
  Weight: 85.352 kg

DRUGS (8)
  1. HUMIRA [Suspect]
     Indication: CROHN'S DISEASE
     Route: 058
     Dates: start: 20070815
  2. ALBUTEROL [Concomitant]
     Indication: DRUG USE FOR UNKNOWN INDICATION
  3. SERTRALINE [Concomitant]
     Indication: DRUG USE FOR UNKNOWN INDICATION
  4. MERCAPTOPURINE [Concomitant]
     Indication: DRUG USE FOR UNKNOWN INDICATION
  5. M.V.I. [Concomitant]
     Indication: DRUG USE FOR UNKNOWN INDICATION
  6. POLYSACCHARIDE-IRON COMPLEX [Concomitant]
     Indication: DRUG USE FOR UNKNOWN INDICATION
  7. CALCIUM CITRATE [Concomitant]
     Indication: DRUG USE FOR UNKNOWN INDICATION
  8. LOESTRIN 24 [Concomitant]
     Indication: CONTRACEPTION

REACTIONS (4)
  - FATIGUE [None]
  - PALLOR [None]
  - RASH [None]
  - RESPIRATORY DISORDER [None]
